FAERS Safety Report 7287202-4 (Version None)
Quarter: 2011Q1

REPORT INFORMATION
  Report Type: 
  Country: None (occurrence: None)
  Receive Date: 20110211
  Receipt Date: 20110208
  Transmission Date: 20110831
  Serious: Yes (Life-Threatening, Hospitalization)
  Sender: FDA-Public Use
  Company Number: DE-TEVA-266337GER

PATIENT
  Sex: Male

DRUGS (1)
  1. TAMSULOSIN RATIOPHARM 0,4 MG [Suspect]

REACTIONS (1)
  - ARRHYTHMIA [None]
